FAERS Safety Report 8732508 (Version 2)
Quarter: 2015Q2

REPORT INFORMATION
  Report Type: Report from Study
  Country: US (occurrence: US)
  Receive Date: 20120820
  Receipt Date: 20150629
  Transmission Date: 20150821
  Serious: Yes (Hospitalization, Other)
  Sender: FDA-Public Use
  Company Number: US-ROCHE-1100480

PATIENT
  Age: 47 Year
  Sex: Male

DRUGS (2)
  1. ACTIVASE [Suspect]
     Active Substance: ALTEPLASE
     Indication: ACUTE MYOCARDIAL INFARCTION
     Dosage: 3 LITRE PER MIN
     Route: 040
  2. LASIX [Concomitant]
     Active Substance: FUROSEMIDE
     Route: 042

REACTIONS (16)
  - Sinus arrest [Unknown]
  - Dental caries [Unknown]
  - Gastritis [Unknown]
  - Hypotension [Unknown]
  - Duodenitis [Unknown]
  - Supraventricular extrasystoles [Unknown]
  - Chest discomfort [Unknown]
  - Hyperhidrosis [Unknown]
  - Vomiting [Unknown]
  - Dyspnoea [Unknown]
  - Bradycardia [Unknown]
  - Emotional distress [Unknown]
  - Nausea [Unknown]
  - Chest pain [Unknown]
  - Electrocardiogram P wave abnormal [Unknown]
  - Asthenia [Unknown]
